FAERS Safety Report 4364035-X (Version None)
Quarter: 2004Q2

REPORT INFORMATION
  Report Type: 
  Country: None (occurrence: None)
  Receive Date: 20040520
  Receipt Date: 20040520
  Transmission Date: 20050107
  Serious: Yes (Hospitalization)
  Sender: FDA-Public Use
  Company Number: None

PATIENT
  Age: 72 Year
  Sex: Female
  Weight: 48.2 kg

DRUGS (2)
  1. DOCETAXEL [Suspect]
     Indication: NON-SMALL CELL LUNG CANCER
     Dosage: 119 MG Q 3 WEEKS IV
     Route: 042
     Dates: start: 20040402, end: 20040423
  2. IRESSA [Suspect]
     Indication: NON-SMALL CELL LUNG CANCER
     Dosage: 250 MG QD
     Dates: start: 20040402, end: 20040518

REACTIONS (2)
  - DEHYDRATION [None]
  - POST PROCEDURAL DIARRHOEA [None]
